FAERS Safety Report 14085516 (Version 2)
Quarter: 2025Q4

REPORT INFORMATION
  Report Type: Report from Study
  Country: EU (occurrence: EU)
  Receive Date: 20171013
  Receipt Date: 20251007
  Transmission Date: 20260118
  Serious: Yes (Death, Hospitalization, Other)
  Sender: AUROBINDO
  Company Number: EU-AUROBINDO-AUR-APL-2017-41901

PATIENT
  Age: 36 Year

DRUGS (2)
  1. PREDNISONE [Suspect]
     Active Substance: PREDNISONE
     Indication: Immunosuppression
     Route: 065
  2. AZATHIOPRINE [Suspect]
     Active Substance: AZATHIOPRINE
     Indication: Immunosuppression
     Route: 065

REACTIONS (9)
  - Meningitis pneumococcal [Fatal]
  - Headache [Fatal]
  - Seizure [Fatal]
  - Depressed level of consciousness [Fatal]
  - CSF white blood cell count increased [Fatal]
  - CSF protein increased [Fatal]
  - Generalised oedema [Fatal]
  - Neurological examination abnormal [Fatal]
  - Disturbance in attention [Unknown]
